FAERS Safety Report 24781088 (Version 1)
Quarter: 2024Q4

REPORT INFORMATION
  Report Type: Spontaneous
  Country: CN (occurrence: CN)
  Receive Date: 20241227
  Receipt Date: 20241227
  Transmission Date: 20250115
  Serious: Yes (Hospitalization, Other)
  Sender: BAXTER
  Company Number: None

PATIENT
  Age: 57 Year
  Sex: Female
  Weight: 70 kg

DRUGS (5)
  1. CYCLOPHOSPHAMIDE [Suspect]
     Active Substance: CYCLOPHOSPHAMIDE
     Indication: Breast cancer female
     Dosage: 1000 MG, ONE TIME IN ONE DAY, DILUTED WITH 100 ML OF 0.9% SODIUM CHLORIDE, FIRST CHEMOTHERAPY ? 6 TI
     Route: 041
     Dates: start: 20241212, end: 20241212
  2. SODIUM CHLORIDE [Suspect]
     Active Substance: SODIUM CHLORIDE
     Indication: Medication dilution
     Dosage: (0.9%) 100 ML, ONE TIME IN ONE DAY, USED TO DILUTE 1000 MG OF CYCLOPHOSPHAMIDE, FIRST CHEMOTHERAPY ?
     Route: 041
     Dates: start: 20241212, end: 20241212
  3. SODIUM CHLORIDE [Suspect]
     Active Substance: SODIUM CHLORIDE
     Dosage: (0.9%) 250 ML, ONE TIME IN ONE DAY, USED TO DILUTE 120 MG OF DOXYCYCLINE, FIRST CHEMOTHERAPY ? 6 TIM
     Route: 041
     Dates: start: 20241212
  4. DOCETAXEL [Suspect]
     Active Substance: DOCETAXEL
     Indication: Breast cancer female
     Dosage: 120 MG, ONE TIME IN ONE DAY
     Route: 041
     Dates: start: 20241212, end: 20241212
  5. DOXYCYCLINE [Suspect]
     Active Substance: DOXYCYCLINE
     Indication: Breast cancer female
     Dosage: 120 MG, ONE TIME IN ONE DAY, DILUTED WITH 250 ML OF 0.9% SODIUM CHLORIDE, FIRST CHEMOTHERAPY ? 6 TIM
     Route: 041
     Dates: start: 20241212

REACTIONS (1)
  - Myelosuppression [Recovered/Resolved]

NARRATIVE: CASE EVENT DATE: 20241219
